FAERS Safety Report 17882683 (Version 1)
Quarter: 2020Q2

REPORT INFORMATION
  Report Type: Spontaneous
  Country: US (occurrence: US)
  Receive Date: 20200610
  Receipt Date: 20200610
  Transmission Date: 20200714
  Serious: No
  Sender: FDA-Public Use
  Company Number: US-ELI_LILLY_AND_COMPANY-US202005008816

PATIENT
  Age: 42 Year
  Sex: Female

DRUGS (3)
  1. TROKENDI [Concomitant]
     Active Substance: TOPIRAMATE
     Indication: SEIZURE
  2. EMGALITY [Suspect]
     Active Substance: GALCANEZUMAB-GNLM
     Indication: PRODUCT USED FOR UNKNOWN INDICATION
     Dosage: 1 DOSAGE FORM, UNKNOWN
     Route: 065
     Dates: start: 201912
  3. TROKENDI [Concomitant]
     Active Substance: TOPIRAMATE
     Indication: MIGRAINE

REACTIONS (1)
  - Alopecia [Not Recovered/Not Resolved]
